FAERS Safety Report 7370301-6 (Version None)
Quarter: 2011Q1

REPORT INFORMATION
  Report Type: 
  Country: None (occurrence: None)
  Receive Date: 20110323
  Receipt Date: 20110318
  Transmission Date: 20110831
  Serious: Yes (Death, Hospitalization, Other)
  Sender: FDA-Public Use
  Company Number: PHHY2010JP86814

PATIENT
  Sex: Male

DRUGS (9)
  1. STOGAR [Concomitant]
     Dosage: 20 MG,
     Route: 048
     Dates: end: 20101023
  2. AFINITOR [Suspect]
     Dosage: 10 MG, DAILY
     Route: 048
     Dates: end: 20101113
  3. ARTIST [Concomitant]
     Dosage: 10 MG,
     Route: 048
     Dates: end: 20101023
  4. OLMETEC [Concomitant]
     Dosage: 20 MG,
     Route: 048
     Dates: end: 20101023
  5. SUNITINIB MALATE [Concomitant]
     Indication: METASTATIC RENAL CELL CARCINOMA
     Dosage: UNK
     Route: 048
     Dates: start: 20100729, end: 20100811
  6. NORVASC [Concomitant]
     Dosage: 10 MG,
     Route: 048
     Dates: end: 20101023
  7. AFINITOR [Suspect]
     Dosage: UNK
     Route: 048
     Dates: end: 20101102
  8. AFINITOR [Suspect]
     Indication: METASTATIC RENAL CELL CARCINOMA
     Dosage: 10 MG, DAILY
     Route: 048
     Dates: start: 20100906, end: 20100927
  9. AFINITOR [Suspect]
     Dosage: 5 MG
     Route: 048
     Dates: start: 20101024

REACTIONS (3)
  - NEOPLASM MALIGNANT [None]
  - BLOOD UREA INCREASED [None]
  - LUNG DISORDER [None]
